FAERS Safety Report 5751386-7 (Version None)
Quarter: 2008Q2

REPORT INFORMATION
  Report Type: 
  Country: None (occurrence: None)
  Receive Date: 20080528
  Receipt Date: 20080520
  Transmission Date: 20081010
  Serious: Yes (Hospitalization)
  Sender: FDA-Public Use
  Company Number: BR-PFIZER INC-2008043847

PATIENT
  Age: 66 Year
  Sex: Female

DRUGS (1)
  1. ACCUPRIL [Suspect]
     Indication: HYPERTENSION
     Dosage: TEXT:UNKNOWN UNKNOW UNKNOWN TDD:UNKNOWN
     Route: 048

REACTIONS (4)
  - HYPERSENSITIVITY [None]
  - MYALGIA [None]
  - NODULE [None]
  - VISUAL DISTURBANCE [None]
